FAERS Safety Report 4899809-X (Version None)
Quarter: 2006Q1

REPORT INFORMATION
  Report Type: 
  Country: None (occurrence: None)
  Receive Date: 20060118
  Receipt Date: 20050912
  Transmission Date: 20060701
  Serious: No
  Sender: FDA-Public Use
  Company Number: 2005001781

PATIENT
  Sex: Female

DRUGS (9)
  1. TARCEVA [Suspect]
     Indication: NON-SMALL CELL LUNG CANCER
     Dosage: 150 MG (QD), ORAL
     Route: 048
     Dates: start: 20050815
  2. ZANTAC [Concomitant]
  3. ACIPHEX [Concomitant]
  4. DETROL [Concomitant]
  5. NEURONTIN [Concomitant]
  6. DIFLUCAN [Concomitant]
  7. MYCELEX [Concomitant]
  8. FLUTICASONE PROPIONATE [Concomitant]
  9. ZYRTEC [Concomitant]

REACTIONS (2)
  - HAIR GROWTH ABNORMAL [None]
  - HYPERTRICHOSIS [None]
